FAERS Safety Report 7033478-8 (Version None)
Quarter: 2010Q4

REPORT INFORMATION
  Report Type: 
  Country: None (occurrence: None)
  Receive Date: 20101005
  Receipt Date: 20100803
  Transmission Date: 20110411
  Serious: Yes (Hospitalization, Disabling, Other)
  Sender: FDA-Public Use
  Company Number: ACO_01621_2010

PATIENT
  Sex: Female
  Weight: 54.4316 kg

DRUGS (4)
  1. AMPYRA [Suspect]
     Indication: GAIT DISTURBANCE
     Dosage: (10 MG BID ORAL)
     Route: 048
     Dates: start: 20100722, end: 20100803
  2. AMPYRA [Suspect]
     Indication: GAIT DISTURBANCE
     Dosage: (10 MG BID ORAL)
     Route: 048
     Dates: start: 20100826, end: 20100826
  3. BETASERON [Concomitant]
  4. MEDICINE FOR BLOOD PRESSURE [Concomitant]

REACTIONS (5)
  - BALANCE DISORDER [None]
  - DISORIENTATION [None]
  - HYPERHIDROSIS [None]
  - HYPERSENSITIVITY [None]
  - PARALYSIS [None]
